FAERS Safety Report 6577987-4 (Version None)
Quarter: 2010Q1

REPORT INFORMATION
  Report Type: 
  Country: None (occurrence: None)
  Receive Date: 20100211
  Receipt Date: 20100131
  Transmission Date: 20100710
  Serious: Yes (Death, Other)
  Sender: FDA-Public Use
  Company Number: TW-BRISTOL-MYERS SQUIBB COMPANY-14956445

PATIENT
  Age: 79 Year
  Sex: Male

DRUGS (7)
  1. MITOMYCIN [Suspect]
     Indication: PENIS CARCINOMA
     Route: 013
  2. BLEOMYCIN SULFATE [Suspect]
     Indication: PENIS CARCINOMA
     Route: 013
  3. CISPLATIN [Suspect]
     Indication: PENIS CARCINOMA
     Route: 013
  4. METHOTREXATE [Suspect]
     Indication: PENIS CARCINOMA
     Route: 013
  5. FLUOROURACIL [Suspect]
     Indication: PENIS CARCINOMA
     Route: 013
  6. RADIOTHERAPY [Suspect]
     Indication: PENIS CARCINOMA
  7. CALCIUM FOLINATE [Concomitant]

REACTIONS (3)
  - ANAEMIA [None]
  - DECREASED APPETITE [None]
  - PENIS CARCINOMA RECURRENT [None]
